FAERS Safety Report 5354650-9 (Version None)
Quarter: 2007Q2

REPORT INFORMATION
  Report Type: 
  Country: None (occurrence: None)
  Receive Date: 20070612
  Receipt Date: 20070531
  Transmission Date: 20071010
  Serious: No
  Sender: FDA-Public Use
  Company Number: US-ASTRAZENECA-2006UW08342

PATIENT
  Age: 712 Month
  Sex: Male
  Weight: 104.1 kg

DRUGS (5)
  1. SEROQUEL [Suspect]
     Indication: BIPOLAR DISORDER
     Dosage: 25MG, 100MG AT BEDTIME
     Route: 048
     Dates: start: 20010313
  2. GEODON [Concomitant]
     Dates: start: 20020515
  3. RISPERDAL [Concomitant]
     Dates: start: 20020614
  4. ZYPREXA [Concomitant]
  5. METHADONE HCL [Concomitant]
     Dates: start: 20010621

REACTIONS (1)
  - DIABETES MELLITUS [None]
